FAERS Safety Report 10676861 (Version 1)
Quarter: 2014Q4

REPORT INFORMATION
  Report Type: Spontaneous
  Country: DE (occurrence: DE)
  Receive Date: 20141226
  Receipt Date: 20141226
  Transmission Date: 20150529
  Serious: Yes (Hospitalization)
  Sender: FDA-Public Use
  Company Number: DE-BAYER-2014-186906

PATIENT
  Age: 32 Year
  Sex: Female

DRUGS (6)
  1. CIPROBAY [Suspect]
     Active Substance: CIPROFLOXACIN
     Dosage: 1000 MG, UNK
     Dates: start: 20130418, end: 20130422
  2. SEROQUEL [Interacting]
     Active Substance: QUETIAPINE FUMARATE
     Dosage: 300 MG, UNK
     Dates: start: 20130411, end: 20130417
  3. AKINETON [Interacting]
     Active Substance: BIPERIDEN HYDROCHLORIDE
     Dosage: UNK
     Dates: start: 20130422
  4. SEROQUEL [Interacting]
     Active Substance: QUETIAPINE FUMARATE
     Dosage: 400 MG, UNK
     Dates: start: 20130417
  5. ZYPREXA [Interacting]
     Active Substance: OLANZAPINE
     Dosage: 30 MG, UNK
     Dates: start: 20130408, end: 20130422
  6. RISPERDAL [Concomitant]
     Active Substance: RISPERIDONE
     Dosage: 2 MG, UNK
     Dates: start: 20130419, end: 20130423

REACTIONS (1)
  - Urinary hesitation [Recovered/Resolved]

NARRATIVE: CASE EVENT DATE: 20130422
